FAERS Safety Report 7358084-7 (Version None)
Quarter: 2011Q1

REPORT INFORMATION
  Report Type: 
  Country: None (occurrence: None)
  Receive Date: 20110317
  Receipt Date: 20110308
  Transmission Date: 20110831
  Serious: Yes (Hospitalization, Disabling, Other)
  Sender: FDA-Public Use
  Company Number: US-ELI_LILLY_AND_COMPANY-US201012006202

PATIENT
  Sex: Male
  Weight: 102.49 kg

DRUGS (3)
  1. ASPIRIN [Concomitant]
  2. EFFIENT [Suspect]
     Indication: ACUTE MYOCARDIAL INFARCTION
     Dosage: 60 D/F, LOADING DOSE
     Dates: start: 20101127
  3. EFFIENT [Suspect]
     Dosage: 10 MG, DAILY (1/D)
     Route: 048
     Dates: end: 20101228

REACTIONS (3)
  - HAEMORRHAGE INTRACRANIAL [None]
  - VISUAL FIELD DEFECT [None]
  - HEMIPARESIS [None]
